FAERS Safety Report 9621161 (Version 1)
Quarter: 2013Q4

REPORT INFORMATION
  Report Type: Spontaneous
  Country: FR (occurrence: FR)
  Receive Date: 20131015
  Receipt Date: 20131015
  Transmission Date: 20140711
  Serious: Yes (Life-Threatening, Disabling)
  Sender: FDA-Public Use
  Company Number: FR-NOVOPROD-389685

PATIENT
  Age: 39 Year
  Sex: Female

DRUGS (4)
  1. NOVOSEVEN [Suspect]
     Indication: PRODUCT USED FOR UNKNOWN INDICATION
     Dosage: 5 MG, QD
     Route: 042
     Dates: start: 20130118, end: 20130118
  2. EXACYL [Suspect]
     Indication: PRODUCT USED FOR UNKNOWN INDICATION
     Dosage: UNK
     Route: 042
     Dates: start: 20130118, end: 20130119
  3. NALADOR [Suspect]
     Indication: PRODUCT USED FOR UNKNOWN INDICATION
     Dosage: UNK
     Route: 042
     Dates: start: 20130118, end: 20130118
  4. SYNTOCINON [Concomitant]
     Dosage: UNK
     Dates: start: 20130119

REACTIONS (1)
  - Renal cortical necrosis [Unknown]
